FAERS Safety Report 20530294 (Version 1)
Quarter: 2022Q1

REPORT INFORMATION
  Report Type: Spontaneous
  Country: US (occurrence: US)
  Receive Date: 20220301
  Receipt Date: 20220301
  Transmission Date: 20220423
  Serious: No
  Sender: FDA-Public Use
  Company Number: US-AMGEN-USASP2022033993

PATIENT
  Age: 75 Year
  Sex: Male

DRUGS (1)
  1. FILGRASTIM [Suspect]
     Active Substance: FILGRASTIM
     Indication: Peripheral arterial occlusive disease
     Dosage: 10 MILLIGRAM/KILOGRAM  (EVERY 72 H)
     Route: 058

REACTIONS (4)
  - Venous recanalisation [Unknown]
  - Neovascularisation [Unknown]
  - Fibrin degradation products increased [Unknown]
  - Plasmin increased [Unknown]
